FAERS Safety Report 5283583-1 (Version None)
Quarter: 2007Q2

REPORT INFORMATION
  Report Type: 
  Country: None (occurrence: None)
  Receive Date: 20070402
  Receipt Date: 20070319
  Transmission Date: 20071010
  Serious: Yes (Hospitalization)
  Sender: FDA-Public Use
  Company Number: CH-ROCHE-488301

PATIENT
  Age: 62 Year
  Sex: Male

DRUGS (8)
  1. CAPECITABINE [Suspect]
     Route: 048
     Dates: start: 20070227
  2. OXALIPLATIN [Suspect]
     Route: 042
     Dates: start: 20070227
  3. IRINOTECAN HCL [Suspect]
     Route: 042
     Dates: start: 20070305
  4. ACIDUM ACETYLSALICYLICUM [Concomitant]
     Route: 048
  5. VALSARTANUM [Concomitant]
     Route: 048
  6. METOPROLOL SUCCINATE [Concomitant]
     Route: 048
  7. GLIMEPIRIDUM [Concomitant]
     Route: 048
  8. PIOGLITAZONUM [Concomitant]
     Route: 048

REACTIONS (4)
  - DIARRHOEA [None]
  - HYPERGLYCAEMIA [None]
  - LEUKOPENIA [None]
  - PYREXIA [None]
